FAERS Safety Report 11739251 (Version 1)
Quarter: 2015Q4

REPORT INFORMATION
  Report Type: Spontaneous
  Country: US (occurrence: US)
  Receive Date: 20151110
  Receipt Date: 20151110
  Transmission Date: 20160304
  Serious: No
  Sender: FDA-Public Use
  Company Number: US-ELI_LILLY_AND_COMPANY-US201208001123

PATIENT
  Age: 55 Year
  Sex: Female
  Weight: 54.42 kg

DRUGS (2)
  1. CORTISONE [Concomitant]
     Active Substance: CORTISONE\HYDROCORTISONE
  2. FORTEO [Suspect]
     Active Substance: TERIPARATIDE
     Indication: OSTEOPOROSIS
     Dosage: 20 UG, QD
     Route: 058
     Dates: start: 20111111

REACTIONS (12)
  - Impaired healing [Unknown]
  - Fear [Unknown]
  - Arthralgia [Unknown]
  - Bone disorder [Unknown]
  - Dry mouth [Unknown]
  - Malaise [Unknown]
  - General symptom [Unknown]
  - Femoral hernia [Recovering/Resolving]
  - Swelling [Unknown]
  - Pain [Not Recovered/Not Resolved]
  - Abdominal distension [Unknown]
  - Movement disorder [Unknown]

NARRATIVE: CASE EVENT DATE: 20120728
